FAERS Safety Report 9938426 (Version 2)
Quarter: 2014Q1

REPORT INFORMATION
  Report Type: Spontaneous
  Country: US (occurrence: US)
  Receive Date: 20140303
  Receipt Date: 20140303
  Transmission Date: 20141002
  Serious: Yes (Hospitalization)
  Sender: FDA-Public Use
  Company Number: US-ELI_LILLY_AND_COMPANY-US_030494250

PATIENT
  Age: 11 Year
  Sex: Male
  Weight: 34 kg

DRUGS (2)
  1. STRATTERA [Suspect]
     Indication: ATTENTION DEFICIT/HYPERACTIVITY DISORDER
     Dosage: 1.2 MG/KG, DAILY (1/D)
     Route: 048
     Dates: start: 20030203, end: 200303
  2. TENEX [Concomitant]
     Dosage: 1.5 MG, 2/D
     Route: 048
     Dates: start: 200202

REACTIONS (2)
  - Mania [Recovered/Resolved]
  - Nausea [Unknown]
